FAERS Safety Report 21414211 (Version 12)
Quarter: 2024Q2

REPORT INFORMATION
  Report Type: Spontaneous
  Country: US (occurrence: US)
  Receive Date: 20221006
  Receipt Date: 20240423
  Transmission Date: 20240716
  Serious: Yes (Other)
  Sender: FDA-Public Use
  Company Number: US-GLAXOSMITHKLINE-US2022141277

PATIENT

DRUGS (6)
  1. ZEJULA [Suspect]
     Active Substance: NIRAPARIB
     Indication: Ovarian cancer
     Dosage: 200 MG, QD
     Dates: start: 20220914
  2. ZEJULA [Suspect]
     Active Substance: NIRAPARIB
     Dosage: 200 MG, QD
  3. ZEJULA [Suspect]
     Active Substance: NIRAPARIB
     Dosage: 200 MG, QD
  4. ZEJULA [Suspect]
     Active Substance: NIRAPARIB
     Dosage: 200 MG, QD
  5. ZEJULA [Suspect]
     Active Substance: NIRAPARIB
     Dosage: 200 MG, QD
  6. ZEJULA [Suspect]
     Active Substance: NIRAPARIB
     Indication: Ovarian cancer
     Dosage: 200 MG, QD

REACTIONS (16)
  - Deafness [Recovered/Resolved]
  - Headache [Unknown]
  - Insomnia [Unknown]
  - Anxiety [Unknown]
  - Influenza like illness [Unknown]
  - Fatigue [Recovering/Resolving]
  - Blood pressure increased [Unknown]
  - Constipation [Unknown]
  - White blood cell count decreased [Recovered/Resolved]
  - Oropharyngeal pain [Unknown]
  - Coronavirus test positive [Not Recovered/Not Resolved]
  - Oral surgery [Unknown]
  - Tinnitus [Recovered/Resolved]
  - Asthenia [Unknown]
  - Blood cholesterol increased [Unknown]
  - Product dose omission issue [Unknown]

NARRATIVE: CASE EVENT DATE: 20221006
